FAERS Safety Report 6744960-2 (Version None)
Quarter: 2010Q2

REPORT INFORMATION
  Report Type: 
  Country: None (occurrence: None)
  Receive Date: 20100527
  Receipt Date: 20100518
  Transmission Date: 20101027
  Serious: Yes (Other)
  Sender: FDA-Public Use
  Company Number: CA-ABBOTT-10P-028-0645867-00

PATIENT
  Sex: Female
  Weight: 90.8 kg

DRUGS (11)
  1. HUMIRA [Suspect]
     Indication: PSORIATIC ARTHROPATHY
     Route: 058
     Dates: start: 20070506, end: 20100428
  2. SYNTHROID [Concomitant]
     Indication: THYROID DISORDER
     Route: 048
  3. PREMARIN [Concomitant]
     Indication: DRUG USE FOR UNKNOWN INDICATION
     Route: 048
  4. ARAVA [Concomitant]
     Indication: ARTHRITIS
     Route: 048
  5. METHOTREXATE [Concomitant]
     Indication: ARTHRITIS
     Dosage: 4 TABLETS WEEKLY
     Route: 048
  6. KETOPROFEN [Concomitant]
     Indication: ARTHRITIS
  7. MONOPRIL [Concomitant]
     Indication: DRUG USE FOR UNKNOWN INDICATION
     Route: 048
  8. SERC [Concomitant]
     Indication: MENIERE'S DISEASE
     Route: 048
  9. TRIAZIDE [Concomitant]
     Indication: DRUG USE FOR UNKNOWN INDICATION
     Route: 048
  10. LEUCOVORIN CALCIUM [Concomitant]
     Indication: DRUG USE FOR UNKNOWN INDICATION
     Route: 048
  11. CODEINE CONTIN [Concomitant]
     Indication: PAIN
     Route: 048

REACTIONS (7)
  - CYST [None]
  - DIZZINESS [None]
  - INCISION SITE ABSCESS [None]
  - INCISION SITE COMPLICATION [None]
  - INCISION SITE PAIN [None]
  - MALAISE [None]
  - PAIN [None]
